FAERS Safety Report 22540675 (Version 1)
Quarter: 2023Q2

REPORT INFORMATION
  Report Type: Spontaneous
  Country: US (occurrence: US)
  Receive Date: 20230609
  Receipt Date: 20230609
  Transmission Date: 20230722
  Serious: Yes (Other)
  Sender: FDA-Public Use
  Company Number: US-MLMSERVICE-20230523-4293525-1

PATIENT
  Age: 5 Decade
  Sex: Female

DRUGS (5)
  1. CIPROFLOXACIN [Interacting]
     Active Substance: CIPROFLOXACIN
     Indication: Incision site cellulitis
     Dosage: UNKNOWN
     Route: 065
  2. FENTANYL [Interacting]
     Active Substance: FENTANYL
     Indication: Breakthrough pain
     Route: 062
  3. FENTANYL [Interacting]
     Active Substance: FENTANYL
     Route: 062
  4. HYDROMORPHONE [Concomitant]
     Active Substance: HYDROMORPHONE
     Indication: Breakthrough pain
     Route: 065
  5. AMOXICILLIN\CLAVULANIC ACID [Concomitant]
     Active Substance: AMOXICILLIN\CLAVULANIC ACID
     Indication: Incision site cellulitis
     Dosage: UNKNOWN
     Route: 065

REACTIONS (5)
  - Hypersomnia [Unknown]
  - Drug interaction [Recovered/Resolved]
  - Fatigue [Unknown]
  - Myoclonus [Recovering/Resolving]
  - Confusional state [Recovering/Resolving]
